FAERS Safety Report 20094603 (Version 1)
Quarter: 2021Q4

REPORT INFORMATION
  Report Type: Spontaneous
  Country: US (occurrence: US)
  Receive Date: 20211122
  Receipt Date: 20211122
  Transmission Date: 20220303
  Serious: No
  Sender: FDA-Public Use
  Company Number: US-BEH-2021137973

PATIENT
  Age: 32 Year
  Sex: Female
  Weight: 63.946 kg

DRUGS (1)
  1. HIZENTRA [Suspect]
     Active Substance: HUMAN IMMUNOGLOBULIN G
     Indication: Myasthenia gravis
     Dosage: 25 GRAM, QW
     Route: 058
     Dates: start: 20211104

REACTIONS (3)
  - Anorgasmia [Unknown]
  - No adverse event [Unknown]
  - Off label use [Unknown]
